FAERS Safety Report 4513442-0 (Version None)
Quarter: 2004Q4

REPORT INFORMATION
  Report Type: 
  Country: None (occurrence: None)
  Receive Date: 20041130
  Receipt Date: 20041012
  Transmission Date: 20050328
  Serious: No
  Sender: FDA-Public Use
  Company Number: US-BRISTOL-MYERS SQUIBB COMPANY-12730529

PATIENT
  Age: 95 Year
  Sex: Male
  Weight: 54 kg

DRUGS (5)
  1. ERBITUX [Suspect]
     Indication: SARCOMA
     Dosage: REC'D  4 WEEKLY TREATMENTS, THEN REST PERIOD, THEN 2 MORE TREATMENTS
     Route: 042
  2. SODIUM CHLORIDE [Concomitant]
     Indication: PREMEDICATION
     Route: 042
  3. BENADRYL [Concomitant]
     Indication: PREMEDICATION
     Route: 042
  4. PERSANTIN INJ [Concomitant]
  5. ALLOPURINOL [Concomitant]

REACTIONS (2)
  - SKIN BLEEDING [None]
  - SKIN LESION [None]
